FAERS Safety Report 21600457 (Version 6)
Quarter: 2024Q1

REPORT INFORMATION
  Report Type: Spontaneous
  Country: US (occurrence: US)
  Receive Date: 20221116
  Receipt Date: 20240216
  Transmission Date: 20240410
  Serious: No
  Sender: FDA-Public Use
  Company Number: US-BRISTOL-MYERS SQUIBB COMPANY-2022-137644

PATIENT
  Age: 72 Year
  Sex: Female
  Weight: 71.67 kg

DRUGS (3)
  1. REVLIMID [Suspect]
     Active Substance: LENALIDOMIDE
     Indication: Plasma cell myeloma in remission
     Route: 048
     Dates: start: 2017
  2. REVLIMID [Suspect]
     Active Substance: LENALIDOMIDE
     Indication: Bone marrow transplant
  3. ACYCLOVIR [Concomitant]
     Active Substance: ACYCLOVIR
     Indication: Product used for unknown indication

REACTIONS (11)
  - Tooth disorder [Unknown]
  - Pathogen resistance [Unknown]
  - Muscle spasms [Unknown]
  - Influenza [Unknown]
  - Protein total increased [Unknown]
  - Diarrhoea [Recovering/Resolving]
  - Fatigue [Unknown]
  - Blood magnesium decreased [Unknown]
  - Blood potassium decreased [Unknown]
  - Laboratory test abnormal [Unknown]
  - Dry eye [Unknown]

NARRATIVE: CASE EVENT DATE: 20221114
